FAERS Safety Report 9286525 (Version 1)
Quarter: 2013Q2

REPORT INFORMATION
  Report Type: Spontaneous
  Country: US (occurrence: None)
  Receive Date: 20130503
  Receipt Date: 20130503
  Transmission Date: 20140414
  Serious: Yes (Hospitalization)
  Sender: FDA-Public Use
  Company Number: KAD201304-000495

PATIENT
  Age: 64 Year
  Sex: Male

DRUGS (2)
  1. RIBAVIRIN (RIBAVIRIN) [Suspect]
     Indication: HEPATITIS C
  2. PEGINTERFERON [Suspect]
     Indication: HEPATITIS C

REACTIONS (6)
  - Glomerulonephritis membranoproliferative [None]
  - Polyneuropathy [None]
  - Skin ulcer [None]
  - Renal failure acute [None]
  - Vasculitis [None]
  - Hypocomplementaemia [None]
